FAERS Safety Report 4353978-9 (Version None)
Quarter: 2004Q2

REPORT INFORMATION
  Report Type: 
  Country: None (occurrence: None)
  Receive Date: 20040506
  Receipt Date: 20040304
  Transmission Date: 20050107
  Serious: Yes (Other)
  Sender: FDA-Public Use
  Company Number: US-GLAXOSMITHKLINE-A0501201A

PATIENT
  Age: 63 Year
  Sex: Female

DRUGS (9)
  1. AVANDAMET [Suspect]
     Dosage: 1TAB TWICE PER DAY
     Dates: start: 20031101
  2. LASIX [Concomitant]
     Dates: end: 20040101
  3. COUMADIN [Concomitant]
  4. KLOR-CON [Concomitant]
     Route: 065
  5. DIGOXIN [Concomitant]
  6. LISINOPRIL [Concomitant]
  7. METOPROLOL SUCCINATE [Concomitant]
  8. SOMA [Concomitant]
  9. ULTRAM [Concomitant]

REACTIONS (4)
  - DIABETES MELLITUS INADEQUATE CONTROL [None]
  - OEDEMA [None]
  - SWELLING [None]
  - WEIGHT INCREASED [None]
